FAERS Safety Report 10370557 (Version 1)
Quarter: 2014Q3

REPORT INFORMATION
  Report Type: Spontaneous
  Country: US (occurrence: None)
  Receive Date: 20140807
  Receipt Date: 20140807
  Transmission Date: 20150326
  Serious: Yes (Hospitalization)
  Sender: FDA-Public Use
  Company Number: None

PATIENT
  Age: 68 Year
  Sex: Female
  Weight: 87.1 kg

DRUGS (7)
  1. CABOZANTINIB [Suspect]
     Active Substance: CABOZANTINIB
     Indication: BREAST CANCER METASTATIC
     Route: 048
     Dates: start: 20130903
  2. LOVENOX(ENOXAPARIN) [Concomitant]
  3. HYOSCYMAINE [Concomitant]
  4. LOPERAMIDE HCL [Concomitant]
     Active Substance: LOPERAMIDE HYDROCHLORIDE
  5. FULVESTRANT [Suspect]
     Active Substance: FULVESTRANT
     Indication: BREAST CANCER METASTATIC
     Route: 030
     Dates: start: 20130903
  6. ZOMETA [Concomitant]
     Active Substance: ZOLEDRONIC ACID
  7. VITAMIN D3 (CHOLECALCIFEROL) [Concomitant]

REACTIONS (6)
  - Metastases to nervous system [None]
  - Subdural haematoma [None]
  - Nausea [None]
  - Headache [None]
  - Paraesthesia [None]
  - Meningeal disorder [None]

NARRATIVE: CASE EVENT DATE: 20140805
